FAERS Safety Report 22176473 (Version 1)
Quarter: 2023Q2

REPORT INFORMATION
  Report Type: Spontaneous
  Country: US (occurrence: None)
  Receive Date: 20230404
  Receipt Date: 20230404
  Transmission Date: 20230721
  Serious: Yes (Other)
  Sender: FDA-Public Use
  Company Number: None

PATIENT
  Age: 30 Year
  Sex: Female

DRUGS (1)
  1. METHYLPHENIDATE [Suspect]
     Active Substance: METHYLPHENIDATE
     Indication: Attention deficit hyperactivity disorder
     Route: 048

REACTIONS (5)
  - Product substitution issue [None]
  - Therapeutic response changed [None]
  - Fatigue [None]
  - Constipation [None]
  - Mood swings [None]

NARRATIVE: CASE EVENT DATE: 20230213
